FAERS Safety Report 19878316 (Version 1)
Quarter: 2021Q3

REPORT INFORMATION
  Report Type: Spontaneous
  Country: US (occurrence: US)
  Receive Date: 20210924
  Receipt Date: 20210924
  Transmission Date: 20211014
  Serious: No
  Sender: FDA-Public Use
  Company Number: None

PATIENT
  Age: 73 Year
  Sex: Male

DRUGS (1)
  1. REGEN?COV [Suspect]
     Active Substance: CASIRIVIMAB\IMDEVIMAB
     Dates: start: 20210923, end: 20210923

REACTIONS (5)
  - Hypertension [None]
  - Tachycardia [None]
  - Infusion related reaction [None]
  - Feeling cold [None]
  - Tremor [None]

NARRATIVE: CASE EVENT DATE: 20210923
